FAERS Safety Report 6976911-X (Version None)
Quarter: 2010Q3

REPORT INFORMATION
  Report Type: 
  Country: None (occurrence: None)
  Receive Date: 20100910
  Receipt Date: 20100827
  Transmission Date: 20110219
  Serious: Yes (Hospitalization)
  Sender: FDA-Public Use
  Company Number: US-ELI_LILLY_AND_COMPANY-US201008008872

PATIENT
  Age: 57 Year
  Sex: Female

DRUGS (2)
  1. EFFIENT [Suspect]
     Indication: STENT PLACEMENT
     Dosage: 60 MG, UNK
     Dates: start: 20100819
  2. EFFIENT [Suspect]
     Dosage: 1 D/F, UNK
     Dates: start: 20100819, end: 20100826

REACTIONS (2)
  - CHEST PAIN [None]
  - THROMBOSIS IN DEVICE [None]
